FAERS Safety Report 5987722-6 (Version None)
Quarter: 2008Q4

REPORT INFORMATION
  Report Type: 
  Country: None (occurrence: None)
  Receive Date: 20081209
  Receipt Date: 20081203
  Transmission Date: 20090506
  Serious: Yes (Other)
  Sender: FDA-Public Use
  Company Number: TN-ROXANE LABORATORIES, INC.-2008-RO-00338RO

PATIENT
  Age: 29 Year
  Sex: Male

DRUGS (5)
  1. MYCOPHENOLATE MOFETIL [Suspect]
     Indication: IMMUNOSUPPRESSION
  2. TACROLIMUS [Suspect]
     Indication: IMMUNOSUPPRESSION
  3. CORTICOSTEROID [Suspect]
     Indication: IMMUNOSUPPRESSION
  4. GANCICLOVIR [Suspect]
     Indication: CYTOMEGALOVIRUS ANTIGEN POSITIVE
  5. GRANULOCYTE GROWTH FACTOR [Concomitant]
     Indication: PANCYTOPENIA

REACTIONS (4)
  - CYTOMEGALOVIRUS ANTIGEN POSITIVE [None]
  - HISTIOCYTOSIS HAEMATOPHAGIC [None]
  - POLYOMAVIRUS-ASSOCIATED NEPHROPATHY [None]
  - RENAL IMPAIRMENT [None]
